FAERS Safety Report 25302073 (Version 1)
Quarter: 2025Q2

REPORT INFORMATION
  Report Type: Spontaneous
  Country: US (occurrence: US)
  Receive Date: 20250512
  Receipt Date: 20250512
  Transmission Date: 20250717
  Serious: No
  Sender: BRISTOL-MYERS SQUIBB COMPANY
  Company Number: US-BRISTOL-MYERS SQUIBB COMPANY-2025-068650

PATIENT
  Age: 72 Year
  Sex: Male

DRUGS (2)
  1. IDHIFA [Suspect]
     Active Substance: ENASIDENIB MESYLATE
     Indication: Acute myeloid leukaemia
     Dosage: PLANNED
     Route: 048
     Dates: start: 20250306
  2. ERTAPENEM [Suspect]
     Active Substance: ERTAPENEM
     Indication: Product used for unknown indication

REACTIONS (1)
  - Drug eruption [Unknown]
